FAERS Safety Report 10715812 (Version 1)
Quarter: 2015Q1

REPORT INFORMATION
  Report Type: Spontaneous
  Country: US (occurrence: None)
  Receive Date: 20150107
  Receipt Date: 20150107
  Transmission Date: 20150721
  Serious: Yes (Other)
  Sender: FDA-Public Use
  Company Number: 2014TUS011676

PATIENT
  Age: 63 Year
  Sex: Male
  Weight: 122.4 kg

DRUGS (1)
  1. CONTRAVE [Suspect]
     Active Substance: BUPROPION HYDROCHLORIDE\NALTREXONE HYDROCHLORIDE
     Indication: OVERWEIGHT
     Dosage: 8/9 MG QAM, 1 DOSE, ORAL
     Route: 048
     Dates: start: 20141116, end: 20141116

REACTIONS (4)
  - Seizure [None]
  - Vomiting [None]
  - Asthenia [None]
  - Cold sweat [None]

NARRATIVE: CASE EVENT DATE: 20141116
